FAERS Safety Report 20701271 (Version 3)
Quarter: 2022Q3

REPORT INFORMATION
  Report Type: Spontaneous
  Country: DE (occurrence: DE)
  Receive Date: 20220412
  Receipt Date: 20220707
  Transmission Date: 20221026
  Serious: Yes (Other)
  Sender: FDA-Public Use
  Company Number: DE-AstraZeneca-2022A121408

PATIENT
  Sex: Female

DRUGS (5)
  1. PAXLOVID [Interacting]
     Active Substance: NIRMATRELVIR\RITONAVIR
     Indication: COVID-19 treatment
  2. LYNPARZA [Interacting]
     Active Substance: OLAPARIB
     Indication: Ovarian cancer
     Dosage: 300 MG, 2X/DAY (EVERY 12 HOURS)
     Route: 048
     Dates: start: 2018
  3. DICLOFENAC SODIC [Concomitant]
     Dosage: 30 MG, 2X/DAY
     Dates: start: 202201
  4. RAMIPRIL [Concomitant]
     Active Substance: RAMIPRIL
     Indication: Hypertension
     Dosage: 3 MG, 1X/DAY
     Dates: start: 201811
  5. CHOLECALCIFEROL [Concomitant]
     Active Substance: CHOLECALCIFEROL
     Indication: Osteoporosis
     Dosage: 1 DF, WEEKLY

REACTIONS (19)
  - Pyrexia [Recovering/Resolving]
  - Fatigue [Recovering/Resolving]
  - Asthenia [Recovering/Resolving]
  - Skin cancer [Unknown]
  - Dysphonia [Unknown]
  - Listless [Recovering/Resolving]
  - Drug interaction [Unknown]
  - COVID-19 [Not Recovered/Not Resolved]
  - Drug ineffective [Unknown]
  - Ear pain [Not Recovered/Not Resolved]
  - White blood cell count decreased [Unknown]
  - Sluggishness [Unknown]
  - Oropharyngeal pain [Not Recovered/Not Resolved]
  - Diarrhoea [Recovered/Resolved]
  - Constipation [Recovered/Resolved]
  - Osteoporosis [Unknown]
  - Nasopharyngitis [Unknown]
  - Headache [Not Recovered/Not Resolved]
  - Hair growth abnormal [Unknown]

NARRATIVE: CASE EVENT DATE: 20220201
